FAERS Safety Report 25082394 (Version 1)
Quarter: 2025Q1

REPORT INFORMATION
  Report Type: Report from Study
  Country: AR (occurrence: AR)
  Receive Date: 20250317
  Receipt Date: 20250317
  Transmission Date: 20250408
  Serious: Yes (Hospitalization, Disabling)
  Sender: EMD SERONO INC
  Company Number: AR-Merck Healthcare KGaA-2024047428

PATIENT
  Sex: Male

DRUGS (1)
  1. REBIF [Suspect]
     Active Substance: INTERFERON BETA-1A
     Indication: Multiple sclerosis

REACTIONS (3)
  - Thrombosis [Unknown]
  - Mobility decreased [Unknown]
  - Feeling abnormal [Unknown]
